FAERS Safety Report 5849344-7 (Version None)
Quarter: 2008Q3

REPORT INFORMATION
  Report Type: 
  Country: None (occurrence: None)
  Receive Date: 20080819
  Receipt Date: 20080721
  Transmission Date: 20090109
  Serious: No
  Sender: FDA-Public Use
  Company Number: US-BAYER-200827557NA

PATIENT
  Age: 48 Year
  Sex: Female

DRUGS (1)
  1. MIRENA [Suspect]
     Indication: MENSTRUAL DISORDER
     Route: 015
     Dates: start: 20080620, end: 20080627

REACTIONS (5)
  - ABDOMINAL PAIN [None]
  - ABDOMINAL PAIN LOWER [None]
  - GENITAL DISCOMFORT [None]
  - IUCD COMPLICATION [None]
  - PYREXIA [None]
